FAERS Safety Report 9494097 (Version 1)
Quarter: 2013Q3

REPORT INFORMATION
  Report Type: Spontaneous
  Country: US (occurrence: None)
  Receive Date: 20130829
  Receipt Date: 20130829
  Transmission Date: 20140515
  Serious: Yes (Hospitalization)
  Sender: FDA-Public Use
  Company Number: None

PATIENT
  Age: 67 Year
  Sex: Male
  Weight: 89.5 kg

DRUGS (1)
  1. INSULIN [Suspect]
     Indication: DIABETES MELLITUS
     Route: 058
     Dates: start: 19990625

REACTIONS (3)
  - Fall [None]
  - Ankle fracture [None]
  - Hypoglycaemia [None]
